FAERS Safety Report 13824944 (Version 1)
Quarter: 2017Q3

REPORT INFORMATION
  Report Type: Spontaneous
  Country: TW (occurrence: TW)
  Receive Date: 20170802
  Receipt Date: 20170802
  Transmission Date: 20171127
  Serious: Yes (Death, Other)
  Sender: FDA-Public Use
  Company Number: TW-PFIZER INC-2017330584

PATIENT
  Age: 55 Year
  Sex: Female

DRUGS (4)
  1. IBRANCE [Suspect]
     Active Substance: PALBOCICLIB
     Dosage: 125 MG, CYCLIC (EVERY MONDAY, WEDNESDAY AND FRIDAY)
  2. IBRANCE [Suspect]
     Active Substance: PALBOCICLIB
     Indication: BREAST CANCER
     Dosage: 125 MG, DAILY (21 DAYS ON AND 7 DAYS OFF)
     Dates: start: 20161004
  3. MEGEST /00082602/ [Concomitant]
     Indication: BREAST CANCER
     Dosage: UNK
     Dates: start: 20161205
  4. AROMASIN [Concomitant]
     Active Substance: EXEMESTANE
     Indication: BREAST CANCER
     Dosage: UNK
     Dates: start: 20161004

REACTIONS (8)
  - Death [Fatal]
  - Dizziness [Unknown]
  - Asthenia [Unknown]
  - Neoplasm progression [Unknown]
  - Neutropenia [Unknown]
  - Headache [Unknown]
  - Pancytopenia [Unknown]
  - Abdominal distension [Unknown]

NARRATIVE: CASE EVENT DATE: 2016
